FAERS Safety Report 6292022-3 (Version None)
Quarter: 2009Q3

REPORT INFORMATION
  Report Type: 
  Country: None (occurrence: None)
  Receive Date: 20090730
  Receipt Date: 20090720
  Transmission Date: 20100115
  Serious: Yes (Hospitalization, Other)
  Sender: FDA-Public Use
  Company Number: US-TYCO HEALTHCARE/MALLINCKRODT-T200801495

PATIENT
  Sex: Female

DRUGS (15)
  1. OPTIMARK [Suspect]
     Indication: NUCLEAR MAGNETIC RESONANCE IMAGING
     Dosage: UNK, SINGLE
     Route: 042
     Dates: start: 20060112, end: 20060112
  2. OPTIMARK [Suspect]
     Indication: ANGIOGRAM
     Dosage: UNK, SINGLE
     Route: 042
     Dates: start: 20061019, end: 20061019
  3. OPTIMARK [Suspect]
     Dosage: UNK, SINGLE
     Route: 042
     Dates: start: 20061021, end: 20061021
  4. OMNISCAN [Suspect]
     Indication: NUCLEAR MAGNETIC RESONANCE IMAGING
     Dosage: UNK
     Dates: start: 20060119, end: 20060119
  5. HYDROCODONE [Concomitant]
     Indication: PAIN
     Dosage: EVERY 6 HOURS
  6. GABAPENTIN [Concomitant]
     Indication: NERVE INJURY
     Dosage: 300 MG, QD
  7. ROPINIROLE HYDROCHLORIDE [Concomitant]
     Indication: NERVE INJURY
     Dosage: 2 MG, BID
  8. PLAVIX [Concomitant]
     Indication: THROMBOSIS PROPHYLAXIS
     Dosage: 75 MG, QD
     Dates: start: 20050101
  9. LUNESTA [Concomitant]
     Indication: SLEEP DISORDER
     Dosage: 2 MG, QD
  10. L-THYROXINE SOD [Concomitant]
     Indication: THYROID DISORDER
     Dosage: .5 MG, QD
  11. RENEGEL [Concomitant]
     Indication: RENAL IMPAIRMENT
     Dosage: 800 MG, TID
     Dates: start: 20040101
  12. NEXIUM [Concomitant]
     Indication: GASTROOESOPHAGEAL REFLUX DISEASE
     Dosage: 40 MG, QD
  13. PRAVASTATIN [Concomitant]
     Indication: BLOOD CHOLESTEROL INCREASED
     Dosage: 80 MG, QD
     Dates: start: 20070101
  14. EPOGEN [Concomitant]
     Indication: DIALYSIS
     Dates: start: 20040101
  15. ISOSORBIDE DINITRATE [Concomitant]
     Indication: HYPERTENSION
     Dates: start: 20050101, end: 20071201

REACTIONS (8)
  - ABDOMINAL ABSCESS [None]
  - ABDOMINAL PAIN [None]
  - CEREBROVASCULAR ACCIDENT [None]
  - HAEMORRHOIDS [None]
  - NEPHROGENIC SYSTEMIC FIBROSIS [None]
  - OFF LABEL USE [None]
  - RECTAL HAEMORRHAGE [None]
  - TRANSIENT ISCHAEMIC ATTACK [None]
